FAERS Safety Report 24538105 (Version 1)
Quarter: 2024Q4

REPORT INFORMATION
  Report Type: Spontaneous
  Country: GB (occurrence: GB)
  Receive Date: 20241023
  Receipt Date: 20241023
  Transmission Date: 20250114
  Serious: Yes (Hospitalization)
  Sender: CELLTRION
  Company Number: GB-CELLTRION INC.-2024GB025541

PATIENT

DRUGS (1)
  1. YUFLYMA [Suspect]
     Active Substance: ADALIMUMAB-AATY
     Indication: Spondylitis
     Dosage: UNK
     Route: 058

REACTIONS (3)
  - Heavy menstrual bleeding [Unknown]
  - Oxygen saturation increased [Unknown]
  - Migraine [Unknown]
